FAERS Safety Report 15886922 (Version 1)
Quarter: 2019Q1

REPORT INFORMATION
  Report Type: Spontaneous
  Country: US (occurrence: US)
  Receive Date: 20190130
  Receipt Date: 20190130
  Transmission Date: 20190417
  Serious: Yes (Other)
  Sender: FDA-Public Use
  Company Number: US-TOLMAR, INC.-2019US000806

PATIENT

DRUGS (5)
  1. OMEGA-3                            /01866101/ [Concomitant]
     Active Substance: OMEGA-3 FATTY ACIDS
  2. ELIGARD [Suspect]
     Active Substance: LEUPROLIDE ACETATE
     Indication: PROSTATIC SPECIFIC ANTIGEN INCREASED
     Dosage: 45 MG, (6 MONTH DOSE)
     Route: 058
     Dates: start: 20181221
  3. CITALOPRAM [Concomitant]
     Active Substance: CITALOPRAM HYDROBROMIDE
  4. OMEPRAZOLE. [Concomitant]
     Active Substance: OMEPRAZOLE
  5. FEXOFENADINE [Concomitant]
     Active Substance: FEXOFENADINE\FEXOFENADINE HYDROCHLORIDE

REACTIONS (8)
  - Memory impairment [Unknown]
  - Pulmonary oedema [Unknown]
  - Dizziness [Unknown]
  - Off label use [Unknown]
  - Blood pressure abnormal [Unknown]
  - Pollakiuria [Unknown]
  - Fatigue [Unknown]
  - Generalised oedema [Unknown]
